FAERS Safety Report 6257108-8 (Version None)
Quarter: 2009Q3

REPORT INFORMATION
  Report Type: 
  Country: None (occurrence: None)
  Receive Date: 20090706
  Receipt Date: 20090629
  Transmission Date: 20100115
  Serious: Yes (Hospitalization)
  Sender: FDA-Public Use
  Company Number: B0581273A

PATIENT
  Age: 79 Year
  Sex: Female

DRUGS (9)
  1. DIGOXIN [Suspect]
     Indication: ATRIAL FIBRILLATION
     Route: 048
     Dates: start: 20060101, end: 20090609
  2. LISINOPRIL [Concomitant]
     Indication: HYPERTENSION
     Route: 048
  3. BISOPROLOL [Concomitant]
     Indication: ATRIAL FIBRILLATION
     Route: 048
  4. FUROSEMIDE [Concomitant]
     Indication: HYPERTENSION
     Route: 048
  5. WARFARIN [Concomitant]
     Indication: ATRIAL FIBRILLATION
     Route: 048
  6. DILTIAZEM [Concomitant]
     Dosage: 360MG PER DAY
     Route: 048
  7. CINNARIZINE [Concomitant]
     Dosage: 45MG PER DAY
     Route: 048
  8. ATORVASTATIN CALCIUM [Concomitant]
     Dosage: 20MG PER DAY
  9. TRIMETHOPRIM [Concomitant]
     Indication: URINARY TRACT INFECTION

REACTIONS (4)
  - FALL [None]
  - HALLUCINATION, VISUAL [None]
  - LOSS OF CONSCIOUSNESS [None]
  - SYNCOPE [None]
